FAERS Safety Report 5577408-4 (Version None)
Quarter: 2007Q4

REPORT INFORMATION
  Report Type: 
  Country: None (occurrence: None)
  Receive Date: 20071228
  Receipt Date: 20071217
  Transmission Date: 20080405
  Serious: Yes (Other)
  Sender: FDA-Public Use
  Company Number: US-PFIZER INC-2007106773

PATIENT
  Sex: Male
  Weight: 68.181 kg

DRUGS (2)
  1. CHANTIX [Suspect]
     Indication: SMOKING CESSATION THERAPY
  2. ACETYLSALICYLIC ACID SRT [Concomitant]

REACTIONS (3)
  - HAEMOPTYSIS [None]
  - INFECTION [None]
  - PRODUCTIVE COUGH [None]
